FAERS Safety Report 19572364 (Version 1)
Quarter: 2021Q3

REPORT INFORMATION
  Report Type: Spontaneous
  Country: PL (occurrence: PL)
  Receive Date: 20210716
  Receipt Date: 20210716
  Transmission Date: 20211014
  Serious: Yes (Hospitalization, Other)
  Sender: FDA-Public Use
  Company Number: PL-EMD SERONO-E2B_90084240

PATIENT
  Age: 65 Year
  Sex: Male

DRUGS (30)
  1. BISOPROLOL [Suspect]
     Active Substance: BISOPROLOL
     Indication: PRODUCT USED FOR UNKNOWN INDICATION
     Dosage: 2.5 MG
     Dates: start: 20190811
  2. APIXABAN [Suspect]
     Active Substance: APIXABAN
     Indication: CEREBROVASCULAR ACCIDENT PROPHYLAXIS
     Dosage: 2.5 MILLIGRAM, TWICE DAILY
     Dates: start: 20191115
  3. TORASEMIDE [Suspect]
     Active Substance: TORSEMIDE
     Dosage: 10 MG?THERAPY START DATE: MAR?2021
  4. METFORMIN [Suspect]
     Active Substance: METFORMIN HYDROCHLORIDE
     Indication: PRODUCT USED FOR UNKNOWN INDICATION
     Dosage: 500 MG, THRICE DAILY (3X/DAY)
     Dates: start: 20190811
  5. CARVEDILOL. [Suspect]
     Active Substance: CARVEDILOL
     Dosage: 12.5 MG, THRICE DAILY (3X/DAY)?THERAPY START DATE: ?MAR?2021
  6. FUROSEMIDE. [Suspect]
     Active Substance: FUROSEMIDE
     Dosage: 20 MG, TWICE DAILY (2X/DAY)
     Dates: start: 20191017
  7. EPLERENONE. [Suspect]
     Active Substance: EPLERENONE
     Indication: PRODUCT USED FOR UNKNOWN INDICATION
     Dosage: 25 MG
     Dates: start: 20190811
  8. SACUBITRIL;VALSARTAN [Suspect]
     Active Substance: SACUBITRIL\VALSARTAN
     Indication: PRODUCT USED FOR UNKNOWN INDICATION
     Dosage: 24/26 MG, TWICE DAILY (2X/DAY)
     Dates: start: 20191017
  9. SACUBITRIL;VALSARTAN [Suspect]
     Active Substance: SACUBITRIL\VALSARTAN
     Dosage: 24/26 MG, TWICE DAILY (2X/DAY)?THERAPY START DATE: ?MAR?2021
  10. FUROSEMIDE. [Suspect]
     Active Substance: FUROSEMIDE
     Indication: PRODUCT USED FOR UNKNOWN INDICATION
     Dosage: 40 MG, TWICE DAILY (2X/DAY)
  11. FUROSEMIDE. [Suspect]
     Active Substance: FUROSEMIDE
     Dosage: 40 MG, 1X/DAY?THERAPY START DATE:OCT?2020
  12. ATORVASTATIN CALCIUM. [Suspect]
     Active Substance: ATORVASTATIN CALCIUM
     Indication: PRODUCT USED FOR UNKNOWN INDICATION
     Dosage: 20 MG
  13. ATORVASTATIN CALCIUM. [Suspect]
     Active Substance: ATORVASTATIN CALCIUM
     Dosage: 40 MG
     Dates: start: 20190811
  14. ATORVASTATIN CALCIUM. [Suspect]
     Active Substance: ATORVASTATIN CALCIUM
     Dosage: 40 MG
     Dates: start: 202103
  15. ASA [Suspect]
     Active Substance: ASPIRIN
     Dosage: 75 MG
     Dates: start: 20191015
  16. CLOPIDOGREL BISULFATE. [Suspect]
     Active Substance: CLOPIDOGREL BISULFATE
     Indication: PRODUCT USED FOR UNKNOWN INDICATION
     Dosage: 75 MILLIGRAM
     Route: 048
     Dates: start: 20190811
  17. TORASEMIDE [Suspect]
     Active Substance: TORSEMIDE
     Indication: PRODUCT USED FOR UNKNOWN INDICATION
     Dosage: 10 MG
  18. METFORMIN [Suspect]
     Active Substance: METFORMIN HYDROCHLORIDE
     Dosage: 500 MG, THRICE DAILY (3X/DAY)?THERAPY START DATE: ?MAR?2021
  19. ASA [Suspect]
     Active Substance: ASPIRIN
     Dosage: 75 MG
     Dates: start: 20191115
  20. APIXABAN [Suspect]
     Active Substance: APIXABAN
     Dosage: 2.5 MILLIGRAM, TWICE DAILY?THERAPY START DATE: ?MAR?2021
  21. DAPAGLIFLOZIN. [Concomitant]
     Active Substance: DAPAGLIFLOZIN
     Indication: PRODUCT USED FOR UNKNOWN INDICATION
     Dosage: 10 MG?THERAPY START DATE: ?MAR?2021
  22. PANTOPRAZOLE SODIUM SESQUIHYDRATE [Suspect]
     Active Substance: PANTOPRAZOLE SODIUM
     Indication: PRODUCT USED FOR UNKNOWN INDICATION
     Dosage: UNK
     Dates: start: 20190811
  23. EPLERENONE. [Suspect]
     Active Substance: EPLERENONE
     Dosage: 50 MG
  24. RAMIPRIL. [Suspect]
     Active Substance: RAMIPRIL
     Indication: PRODUCT USED FOR UNKNOWN INDICATION
     Dosage: 2.5 MG
     Dates: start: 20190811
  25. APIXABAN [Suspect]
     Active Substance: APIXABAN
     Dosage: 2.5 MILLIGRAM, TWICE DAILY?THERAPY START DATE: ?OCT?2020
  26. CARVEDILOL. [Suspect]
     Active Substance: CARVEDILOL
     Indication: PRODUCT USED FOR UNKNOWN INDICATION
     Dosage: 12.5 MG?0?6.25 MG
  27. EPLERENONE. [Suspect]
     Active Substance: EPLERENONE
     Dosage: 50 MG
     Dates: start: 202103
  28. ASA [Suspect]
     Active Substance: ASPIRIN
     Indication: PRODUCT USED FOR UNKNOWN INDICATION
     Dosage: 75 MG
     Dates: start: 20190811
  29. TORASEMIDE [Suspect]
     Active Substance: TORSEMIDE
     Dosage: 5 MG
     Dates: start: 20190811
  30. CARVEDILOL. [Suspect]
     Active Substance: CARVEDILOL
     Dosage: 12.5 MG, TWICE DAILY (2X/DAY)

REACTIONS (13)
  - Haemoglobin decreased [Unknown]
  - Platelet count decreased [Unknown]
  - Ejection fraction decreased [Unknown]
  - Mitral valve calcification [Unknown]
  - Pulmonary oedema [Unknown]
  - N-terminal prohormone brain natriuretic peptide increased [Unknown]
  - Heart rate decreased [Unknown]
  - Mitral valve incompetence [Unknown]
  - Glomerular filtration rate decreased [Unknown]
  - Blood pressure decreased [Unknown]
  - Mitral valve thickening [Unknown]
  - Concomitant disease aggravated [Unknown]
  - Glycosylated haemoglobin increased [Unknown]

NARRATIVE: CASE EVENT DATE: 201911
